FAERS Safety Report 24557551 (Version 1)
Quarter: 2024Q4

REPORT INFORMATION
  Report Type: Spontaneous
  Country: IE (occurrence: IE)
  Receive Date: 20241028
  Receipt Date: 20241028
  Transmission Date: 20250114
  Serious: Yes (Other)
  Sender: AUROBINDO
  Company Number: IE-HPRA-2024-116118

PATIENT
  Age: 88 Year
  Sex: Male

DRUGS (1)
  1. MEROPENEM [Suspect]
     Active Substance: MEROPENEM
     Indication: Endocarditis
     Dosage: UNK
     Route: 065
     Dates: start: 20240808

REACTIONS (2)
  - Leukopenia [Recovering/Resolving]
  - Neutropenic sepsis [Recovering/Resolving]

NARRATIVE: CASE EVENT DATE: 20240906
